FAERS Safety Report 4817126-0 (Version None)
Quarter: 2005Q4

REPORT INFORMATION
  Report Type: 
  Country: None (occurrence: None)
  Receive Date: 20051018
  Receipt Date: 20050826
  Transmission Date: 20060501
  Serious: Yes (Hospitalization)
  Sender: FDA-Public Use
  Company Number: PHEH2005US09256

PATIENT
  Age: 57 Year
  Sex: Female

DRUGS (4)
  1. ZOMETA [Suspect]
     Dosage: 4 MG, QMO, INFUSION
  2. VELCADE [Concomitant]
  3. STEROIDS NOS (NO INGREDIENTS/SUBSTANCES) [Concomitant]
  4. THALIDOMIDE [Concomitant]

REACTIONS (4)
  - MOUTH ULCERATION [None]
  - OSTEONECROSIS [None]
  - PAIN IN JAW [None]
  - SOFT TISSUE DISORDER [None]
